FAERS Safety Report 9759302 (Version 1)
Quarter: 2013Q4

REPORT INFORMATION
  Report Type: Spontaneous
  Country: US (occurrence: None)
  Receive Date: 20131216
  Receipt Date: 20131216
  Transmission Date: 20140711
  Serious: Yes (Hospitalization)
  Sender: FDA-Public Use
  Company Number: 163-21880-12041217

PATIENT
  Age: 88 Year
  Sex: Female
  Weight: 68 kg

DRUGS (1)
  1. REVLIMID [Suspect]
     Dosage: 2.5 MG, 1 IN 2 D, PO? ?

REACTIONS (3)
  - Deep vein thrombosis [None]
  - Rash [None]
  - Pruritus [None]
